FAERS Safety Report 15906784 (Version 1)
Quarter: 2019Q1

REPORT INFORMATION
  Report Type: Report from Study
  Country: KE (occurrence: KE)
  Receive Date: 20190204
  Receipt Date: 20190204
  Transmission Date: 20190417
  Serious: Yes (Death, Other)
  Sender: FDA-Public Use
  Company Number: KE-GILEAD-2019-0387226

PATIENT
  Age: 66 Year
  Sex: Female
  Weight: 54.6 kg

DRUGS (7)
  1. EFAVIRENZ/EMTRICITABINE/TENOFOVIR DISOPROXIL FUMARATE [Suspect]
     Active Substance: EFAVIRENZ\EMTRICITABINE\TENOFOVIR DISOPROXIL FUMARATE
     Indication: ANTIRETROVIRAL THERAPY
     Dosage: UNK
     Route: 048
     Dates: start: 20170515, end: 20181215
  2. SEPTRIN [Concomitant]
     Active Substance: SULFAMETHOXAZOLE\TRIMETHOPRIM
     Dosage: UNK
     Dates: end: 20181215
  3. BLEOMYCIN [Suspect]
     Active Substance: BLEOMYCIN SULFATE
     Indication: KAPOSI^S SARCOMA AIDS RELATED
  4. VINCRISTINE [Suspect]
     Active Substance: VINCRISTINE
     Indication: KAPOSI^S SARCOMA AIDS RELATED
  5. EFAVIRENZ/EMTRICITABINE/TENOFOVIR DISOPROXIL FUMARATE [Suspect]
     Active Substance: EFAVIRENZ\EMTRICITABINE\TENOFOVIR DISOPROXIL FUMARATE
     Indication: KAPOSI^S SARCOMA AIDS RELATED
  6. BLEOMYCIN [Suspect]
     Active Substance: BLEOMYCIN SULFATE
     Indication: ANTIRETROVIRAL THERAPY
     Dosage: 23.6 DF, Q3WK
     Route: 042
     Dates: start: 20170515, end: 20170911
  7. VINCRISTINE [Suspect]
     Active Substance: VINCRISTINE
     Indication: ANTIRETROVIRAL THERAPY
     Dosage: 2 MG, Q3WK
     Route: 042
     Dates: start: 20170515, end: 20170911

REACTIONS (1)
  - Death [Fatal]

NARRATIVE: CASE EVENT DATE: 20181215
